FAERS Safety Report 12654331 (Version 1)
Quarter: 2016Q3

REPORT INFORMATION
  Report Type: Spontaneous
  Country: US (occurrence: None)
  Receive Date: 20160815
  Receipt Date: 20160815
  Transmission Date: 20161109
  Serious: Yes (Other)
  Sender: FDA-Public Use
  Company Number: None

PATIENT
  Age: 47 Year
  Sex: Female
  Weight: 68.04 kg

DRUGS (1)
  1. VENLAFAXINE HCL [Suspect]
     Active Substance: VENLAFAXINE HYDROCHLORIDE
     Indication: DEPRESSION
     Dosage: 3 TABLET (S) IN THE MORNING TAKEN BY MOUTH
     Route: 048
     Dates: start: 20160713, end: 20160811

REACTIONS (14)
  - Drug dose omission [None]
  - Paraesthesia [None]
  - Vomiting [None]
  - Photosensitivity reaction [None]
  - Somnolence [None]
  - Malaise [None]
  - Discomfort [None]
  - Dissociation [None]
  - Feeling abnormal [None]
  - Drug withdrawal syndrome [None]
  - Dizziness [None]
  - Disorientation [None]
  - Pain [None]
  - Crying [None]

NARRATIVE: CASE EVENT DATE: 20160812
